FAERS Safety Report 20660208 (Version 2)
Quarter: 2022Q2

REPORT INFORMATION
  Report Type: Spontaneous
  Country: DE (occurrence: DE)
  Receive Date: 20220331
  Receipt Date: 20220415
  Transmission Date: 20220721
  Serious: Yes (Death, Other)
  Sender: FDA-Public Use
  Company Number: DE-SHIONOGI, INC-2022000251

PATIENT
  Age: 58 Year
  Sex: Male

DRUGS (6)
  1. FETROJA [Suspect]
     Active Substance: CEFIDEROCOL SULFATE TOSYLATE
     Indication: Enterobacter infection
     Dosage: 2 G, 8 HOUR
     Route: 040
  2. FETROJA [Suspect]
     Active Substance: CEFIDEROCOL SULFATE TOSYLATE
     Dosage: 1 G, 8 HOUR
     Route: 040
  3. MEROPENEM [Concomitant]
     Active Substance: MEROPENEM
     Indication: Enterobacter infection
     Dosage: 2 G EVERY 8 HOURS WITH PROLONGED INFUSION TIME
     Route: 040
  4. COLISTIN [Concomitant]
     Active Substance: COLISTIN
     Indication: Enterobacter infection
     Dosage: 9 MIO LOADING DOSE
     Route: 042
  5. COLISTIN [Concomitant]
     Active Substance: COLISTIN
     Dosage: FOLLOWED BY 2.5 MIO EVERY 12 HOURS FOR 3 DAYS
     Route: 042
  6. COLISTIN [Concomitant]
     Active Substance: COLISTIN
     Dosage: 4.5 MIO EVERY 12 HOURS FOR ANOTHER 3 DAYS
     Route: 042

REACTIONS (5)
  - Liver abscess [Fatal]
  - Bile duct necrosis [Fatal]
  - Condition aggravated [Fatal]
  - Pathogen resistance [Unknown]
  - Drug resistance [Unknown]
